FAERS Safety Report 10228338 (Version 1)
Quarter: 2014Q2

REPORT INFORMATION
  Report Type: Spontaneous
  Country: US (occurrence: US)
  Receive Date: 20140610
  Receipt Date: 20140610
  Transmission Date: 20141212
  Serious: No
  Sender: FDA-Public Use
  Company Number: US-PFIZER INC-2014155176

PATIENT
  Sex: Female

DRUGS (1)
  1. ZYVOX [Suspect]
     Dosage: UNK
     Route: 048

REACTIONS (2)
  - Medication residue present [Unknown]
  - Product solubility abnormal [Unknown]
